FAERS Safety Report 4960869-9 (Version None)
Quarter: 2006Q1

REPORT INFORMATION
  Report Type: 
  Country: None (occurrence: None)
  Receive Date: 20060328
  Receipt Date: 20060315
  Transmission Date: 20060701
  Serious: Yes (Hospitalization, Other)
  Sender: FDA-Public Use
  Company Number: 2005156954

PATIENT
  Age: 25 Year
  Sex: Female
  Weight: 60 kg

DRUGS (17)
  1. ZYVOX [Suspect]
     Indication: SEPSIS
     Dosage: 1200 MG (2 IN 1 D), ORAL
     Route: 048
     Dates: start: 20051029, end: 20051101
  2. SOLU-MEDROL [Suspect]
     Indication: SYSTEMIC LUPUS ERYTHEMATOSUS
     Dosage: INTRAVENOUS
     Route: 042
     Dates: start: 20051029
  3. CYCLOPHOSPHAMIDE [Concomitant]
  4. ENDOXAN (CYCLOPHOSPHAMIDE) [Concomitant]
  5. UNSPECIFIED TREATMENTS (ALL OTHER THERAPEUTIC PRODUCTS) [Concomitant]
  6. CIPROFLOXACINE (CIPROFLOXACIN) [Concomitant]
  7. OLIVE HUILE; SOJA HUILE (OLIVE OIL) [Concomitant]
  8. ALBUMINE HUMAINE (ALBUMIN HUMAN) [Concomitant]
  9. GLUCOSE [Concomitant]
  10. OMEPRAZOLE [Concomitant]
  11. ENOXAPARINE SODIQUE (HEPARIN-FRACTION, SODIUM SALT) [Concomitant]
  12. ACIDE FOLIQUE (FOLIC ACID) [Concomitant]
  13. BROMAZEPAM [Concomitant]
  14. AMIKACIN [Concomitant]
  15. ACIDE ALENDRONIQUE SEL MONOSODIQUE (ALENDRONIC ACID) [Concomitant]
  16. PARACETAMOL [Concomitant]
  17. MESNA [Concomitant]

REACTIONS (11)
  - ABDOMINAL PAIN [None]
  - CATHETER RELATED INFECTION [None]
  - GLOMERULONEPHRITIS [None]
  - HYPERCALCAEMIA [None]
  - LACTIC ACIDOSIS [None]
  - METABOLIC ACIDOSIS [None]
  - PYREXIA [None]
  - RENAL FAILURE [None]
  - STAPHYLOCOCCAL SEPSIS [None]
  - SYSTEMIC LUPUS ERYTHEMATOSUS [None]
  - VOMITING [None]
